FAERS Safety Report 9277503 (Version 1)
Quarter: 2013Q2

REPORT INFORMATION
  Report Type: Spontaneous
  Country: JP (occurrence: JP)
  Receive Date: 20130508
  Receipt Date: 20130508
  Transmission Date: 20140414
  Serious: Yes (Other)
  Sender: FDA-Public Use
  Company Number: JP-MYLANLABS-2013S1009200

PATIENT
  Age: 5 Year
  Sex: Female

DRUGS (1)
  1. ENALAPRIL [Suspect]
     Route: 065

REACTIONS (4)
  - Renal impairment [Recovering/Resolving]
  - Hyperuricaemia [Recovering/Resolving]
  - Gouty tophus [Recovering/Resolving]
  - Pathological fracture [Unknown]
